FAERS Safety Report 5144073-X (Version None)
Quarter: 2006Q4

REPORT INFORMATION
  Report Type: 
  Country: None (occurrence: None)
  Receive Date: 20061106
  Receipt Date: 20061011
  Transmission Date: 20070319
  Serious: Yes (Hospitalization)
  Sender: FDA-Public Use
  Company Number: JP-JPN-A200604130

PATIENT
  Age: 63 Year
  Sex: Male

DRUGS (7)
  1. VALTREX [Suspect]
     Indication: HERPES ZOSTER
     Dosage: 1000MG THREE TIMES PER DAY
     Route: 048
     Dates: start: 20060930, end: 20061001
  2. RENAGEL [Concomitant]
     Dosage: 6TAB THREE TIMES PER DAY
     Route: 048
  3. TEPRENONE [Concomitant]
     Dosage: 1CAP TWICE PER DAY
     Route: 048
  4. SOLANAX [Concomitant]
     Dosage: 1TAB PER DAY
     Route: 048
  5. VOLTAREN [Concomitant]
     Dosage: 1CAP TWICE PER DAY
     Route: 048
  6. SENNOSIDE [Concomitant]
     Dosage: 2TAB PER DAY
     Route: 048
  7. LANSOPRAZOLE [Concomitant]
     Route: 048

REACTIONS (4)
  - CONFUSIONAL STATE [None]
  - DEPRESSED LEVEL OF CONSCIOUSNESS [None]
  - PSYCHIATRIC SYMPTOM [None]
  - RESTLESSNESS [None]
